FAERS Safety Report 4699781-1 (Version None)
Quarter: 2005Q2

REPORT INFORMATION
  Report Type: 
  Country: None (occurrence: None)
  Receive Date: 20050623
  Receipt Date: 20050607
  Transmission Date: 20051028
  Serious: Yes (Disabling)
  Sender: FDA-Public Use
  Company Number: DSA_26604_2005

PATIENT
  Age: 58 Year
  Sex: Female
  Weight: 56.246 kg

DRUGS (8)
  1. CARDIZEM CD [Suspect]
     Indication: HYPERTENSION
     Dosage: 240 MG Q DAY PO
     Route: 048
     Dates: start: 20050530, end: 20050601
  2. CARDIZEM CD [Suspect]
     Indication: HYPERTENSION
     Dosage: 180 MG Q DAY PO
     Route: 048
  3. CARDIZEM CD [Suspect]
     Indication: HYPERTENSION
     Dosage: 240 MG Q DAY PO
     Route: 048
     Dates: end: 20050529
  4. CARDIZEM CD [Suspect]
     Indication: HYPERTENSION
     Dosage: 240 MG Q DAY PO
     Route: 048
     Dates: start: 20050501
  5. SYNTHROID [Concomitant]
  6. AZMACORT [Concomitant]
  7. NEXIUM [Concomitant]
  8. VAGIFEM [Concomitant]

REACTIONS (10)
  - ASTHENIA [None]
  - BLOOD PRESSURE FLUCTUATION [None]
  - CHEST PAIN [None]
  - DIZZINESS [None]
  - FATIGUE [None]
  - FEELING ABNORMAL [None]
  - HEADACHE [None]
  - HEART RATE INCREASED [None]
  - LOSS OF CONTROL OF LEGS [None]
  - NAUSEA [None]
